FAERS Safety Report 4690036-8 (Version None)
Quarter: 2005Q2

REPORT INFORMATION
  Report Type: 
  Country: None (occurrence: None)
  Receive Date: 20050614
  Receipt Date: 20050531
  Transmission Date: 20051028
  Serious: Yes (Life-Threatening, Hospitalization)
  Sender: FDA-Public Use
  Company Number: 2005075302

PATIENT
  Sex: Female

DRUGS (5)
  1. CABERGOLINE [Suspect]
     Indication: PARKINSON'S DISEASE
     Dosage: 8 MG (8 MG, DIALY), ORAL
     Route: 048
     Dates: start: 20010101, end: 20010101
  2. MADOPAR (BENSERAZIDE HYDROCHLORIDE, LEVODOPA) [Concomitant]
  3. MADOPA 62.5 (BENSERAZIDE HYDROCHLORIDE, LEVODOPA) [Concomitant]
  4. COMTESS (ENTACAPONE) [Concomitant]
  5. AMANTADINE HCL [Concomitant]

REACTIONS (4)
  - DYSPNOEA [None]
  - HEART VALVE INSUFFICIENCY [None]
  - PERICARDITIS CONSTRICTIVE [None]
  - PLEURAL EFFUSION [None]
